FAERS Safety Report 11552861 (Version 1)
Quarter: 2015Q3

REPORT INFORMATION
  Report Type: Spontaneous
  Country: JP (occurrence: JP)
  Receive Date: 20150925
  Receipt Date: 20150925
  Transmission Date: 20151125
  Serious: Yes (Hospitalization, Other)
  Sender: FDA-Public Use
  Company Number: JP-ELI_LILLY_AND_COMPANY-JP201509005948

PATIENT
  Sex: Female

DRUGS (1)
  1. HUMULIN R [Suspect]
     Active Substance: INSULIN HUMAN
     Indication: TYPE 1 DIABETES MELLITUS
     Dosage: UNK
     Route: 058

REACTIONS (9)
  - Oligohydramnios [Unknown]
  - Diabetes mellitus inadequate control [Not Recovered/Not Resolved]
  - Breech presentation [Unknown]
  - Hypoglycaemia [Recovered/Resolved]
  - Threatened labour [Unknown]
  - Uterine contractions during pregnancy [Unknown]
  - Foetal growth restriction [Unknown]
  - Maternal exposure before pregnancy [Unknown]
  - Maternal exposure during pregnancy [Unknown]
